FAERS Safety Report 6169780-1 (Version None)
Quarter: 2009Q2

REPORT INFORMATION
  Report Type: 
  Country: None (occurrence: None)
  Receive Date: 20090428
  Receipt Date: 20080625
  Transmission Date: 20091009
  Serious: Yes (Death, Hospitalization, Other)
  Sender: FDA-Public Use
  Company Number: ES-AMGEN-UK344035

PATIENT
  Age: 47 Year
  Sex: Female

DRUGS (1)
  1. MIMPARA [Suspect]

REACTIONS (3)
  - CARDIAC DISORDER [None]
  - HYPOAESTHESIA [None]
  - PRURITUS [None]
